FAERS Safety Report 15085023 (Version 1)
Quarter: 2018Q2

REPORT INFORMATION
  Report Type: Spontaneous
  Country: US (occurrence: US)
  Receive Date: 20180628
  Receipt Date: 20180628
  Transmission Date: 20180711
  Serious: Yes (Other)
  Sender: FDA-Public Use
  Company Number: US-ELI_LILLY_AND_COMPANY-US201806008868

PATIENT
  Sex: Male

DRUGS (4)
  1. HUMULIN 70/30 [Suspect]
     Active Substance: INSULIN HUMAN
     Dosage: 35 U, EACH MORNING
     Route: 058
     Dates: start: 2013
  2. HUMULIN 70/30 [Suspect]
     Active Substance: INSULIN HUMAN
     Dosage: 25 U, AT NIGHT
     Route: 058
  3. HUMULIN 70/30 [Suspect]
     Active Substance: INSULIN HUMAN
     Dosage: 25 U, AT NIGHT
     Route: 058
  4. HUMULIN 70/30 [Suspect]
     Active Substance: INSULIN HUMAN
     Indication: DIABETES MELLITUS
     Dosage: 35 U, EACH MORNING
     Route: 058
     Dates: start: 2013

REACTIONS (5)
  - Asthenia [Unknown]
  - Myocardial infarction [Unknown]
  - Cardiac disorder [Not Recovered/Not Resolved]
  - Gait disturbance [Unknown]
  - Dyspnoea [Unknown]
